FAERS Safety Report 9154462 (Version 1)
Quarter: 2013Q1

REPORT INFORMATION
  Report Type: Spontaneous
  Country: US (occurrence: None)
  Receive Date: 20130308
  Receipt Date: 20130308
  Transmission Date: 20140127
  Serious: Yes (Other)
  Sender: FDA-Public Use
  Company Number: None

PATIENT
  Age: 28 Year
  Sex: Female

DRUGS (10)
  1. HUMIRA [Suspect]
     Indication: COLITIS ULCERATIVE
     Dosage: 4 X 40MG PENS -160MG TOTAL DAY 1 OF THERAPY SQ
     Dates: start: 20130223, end: 20130305
  2. ZOLOFT [Concomitant]
  3. ASACOL [Concomitant]
  4. PREDNISONE [Concomitant]
  5. TOPROL [Concomitant]
  6. BUSPAR [Concomitant]
  7. MVI [Concomitant]
  8. FISH OIL [Concomitant]
  9. CALCIUM SUPPLEMENT [Concomitant]
  10. VITAMIN C SUPPLEMENT [Concomitant]

REACTIONS (2)
  - Rash [None]
  - Flushing [None]
